FAERS Safety Report 6223408-0 (Version None)
Quarter: 2009Q2

REPORT INFORMATION
  Report Type: 
  Country: None (occurrence: None)
  Receive Date: 20090609
  Receipt Date: 20090529
  Transmission Date: 20091009
  Serious: Yes (Death, Hospitalization, Other)
  Sender: FDA-Public Use
  Company Number: 61007

PATIENT
  Age: 36 Month
  Sex: Male

DRUGS (1)
  1. ACYCLOVIR [Suspect]

REACTIONS (7)
  - CHOREOATHETOSIS [None]
  - DISEASE RECURRENCE [None]
  - DRUG RESISTANCE [None]
  - ENCEPHALITIS HERPES [None]
  - PARTIAL SEIZURES [None]
  - RESPIRATORY FAILURE [None]
  - STATUS EPILEPTICUS [None]
